FAERS Safety Report 21787470 (Version 2)
Quarter: 2023Q1

REPORT INFORMATION
  Report Type: Spontaneous
  Country: US (occurrence: None)
  Receive Date: 20221228
  Receipt Date: 20230215
  Transmission Date: 20230417
  Serious: Yes (Other)
  Sender: FDA-Public Use
  Company Number: US-FARMAPROD-202212-2668

PATIENT
  Sex: Male
  Weight: 87.577 kg

DRUGS (30)
  1. OXERVATE [Suspect]
     Active Substance: CENEGERMIN-BKBJ
     Indication: Neurotrophic keratopathy
     Route: 047
     Dates: start: 20221028, end: 20221224
  2. OXERVATE [Suspect]
     Active Substance: CENEGERMIN-BKBJ
     Indication: Hypoaesthesia eye
  3. REFRESH TEARS [Concomitant]
     Active Substance: CARBOXYMETHYLCELLULOSE SODIUM
  4. REFRESH P.M. [Concomitant]
     Active Substance: MINERAL OIL\PETROLATUM
     Dosage: 42.5-57.3%
  5. OCUSOFT LID SCRUB KIT [Concomitant]
  6. MENAQUINONE 6 [Concomitant]
     Active Substance: MENAQUINONE 6
  7. MAGNESIUM [Concomitant]
     Active Substance: MAGNESIUM
  8. DEXTROMETHORPHAN HYDROBROMIDE\GUAIFENESIN [Concomitant]
     Active Substance: DEXTROMETHORPHAN HYDROBROMIDE\GUAIFENESIN
     Dosage: EXTENDED RELEASE
  9. KRILL OIL [Concomitant]
     Active Substance: DIETARY SUPPLEMENT\KRILL OIL
     Dosage: 1000-130MG
  10. QUERCETIN [Concomitant]
     Active Substance: QUERCETIN
  11. ZINC [Concomitant]
     Active Substance: ZINC
  12. VITAMIN E [Concomitant]
     Active Substance: .ALPHA.-TOCOPHEROL
  13. VITAMIN B COMPLEX WITH C [Concomitant]
     Active Substance: ASCORBIC ACID\CALCIUM PANTOTHENATE\CYANOCOBALAMIN\NIACINAMIDE\PYRIDOXINE HYDROCHLORIDE\RIBOFLAVIN\TH
  14. VITAMIN A [Concomitant]
     Active Substance: VITAMIN A
  15. CALCIUM CITRATE [Concomitant]
     Active Substance: CALCIUM CITRATE
  16. PROBIOTIC 100B CELL [Concomitant]
     Dosage: 100 BILLION CELL
  17. VITAMIN D3 [Concomitant]
     Active Substance: CHOLECALCIFEROL
  18. VITAMIN C [Concomitant]
     Active Substance: ASCORBIC ACID
  19. CEQUA [Concomitant]
     Active Substance: CYCLOSPORINE
     Dates: start: 2022
  20. WIXELA INHUB [Concomitant]
     Active Substance: FLUTICASONE PROPIONATE\SALMETEROL XINAFOATE
     Dosage: 250-50 MICROGRAMS, BLISTER WITH DEVICE
  21. HEPARIN SODIUM [Concomitant]
     Active Substance: HEPARIN SODIUM
     Dosage: SYRINGE
  22. ELIQUIS [Concomitant]
     Active Substance: APIXABAN
     Route: 048
  23. DEFERIPRONE [Concomitant]
     Active Substance: DEFERIPRONE
     Route: 048
     Dates: start: 2021
  24. JADENU [Concomitant]
     Active Substance: DEFERASIROX
  25. PROCRIT [Concomitant]
     Active Substance: ERYTHROPOIETIN
     Dosage: VIAL, 60000 IU / WEEK
     Route: 030
     Dates: start: 2020
  26. FUROSEMIDE [Concomitant]
     Active Substance: FUROSEMIDE
  27. PANTOPRAZOLE SODIUM [Concomitant]
     Active Substance: PANTOPRAZOLE SODIUM
     Dosage: DELAYED RELEASE
  28. TAMSULOSIN HYDROCHLORIDE [Concomitant]
     Active Substance: TAMSULOSIN HYDROCHLORIDE
     Route: 048
     Dates: start: 2000
  29. LYRICA [Concomitant]
     Active Substance: PREGABALIN
     Route: 048
     Dates: start: 2005
  30. OXYGEN [Concomitant]
     Active Substance: OXYGEN
     Dosage: 2-3 LITER

REACTIONS (1)
  - Basosquamous carcinoma [Not Recovered/Not Resolved]
